FAERS Safety Report 4488458-3 (Version None)
Quarter: 2004Q4

REPORT INFORMATION
  Report Type: 
  Country: None (occurrence: None)
  Receive Date: 20041026
  Receipt Date: 20041012
  Transmission Date: 20050328
  Serious: Yes (Other)
  Sender: FDA-Public Use
  Company Number: USA041080919

PATIENT
  Age: 64 Year
  Sex: Male

DRUGS (2)
  1. HUMALOG [Suspect]
     Dates: start: 19930101
  2. ALACE (RAMIPRIL) [Concomitant]

REACTIONS (8)
  - ABDOMINAL PAIN UPPER [None]
  - CHROMATURIA [None]
  - DEPRESSION [None]
  - HYPERTENSION [None]
  - MUSCLE CRAMP [None]
  - PHARMACEUTICAL PRODUCT COMPLAINT [None]
  - RENAL FAILURE [None]
  - RESPIRATORY RATE INCREASED [None]
